FAERS Safety Report 9477607 (Version 1)
Quarter: 2013Q3

REPORT INFORMATION
  Report Type: Spontaneous
  Country: US (occurrence: US)
  Receive Date: 20130827
  Receipt Date: 20130827
  Transmission Date: 20140515
  Serious: Yes (Other)
  Sender: FDA-Public Use
  Company Number: US-BIOGENIDEC-2013BI079878

PATIENT
  Age: 53 Year
  Sex: Female

DRUGS (1)
  1. AVONEX [Suspect]
     Indication: MULTIPLE SCLEROSIS
     Route: 030
     Dates: start: 19990301

REACTIONS (5)
  - Hysterectomy [Recovered/Resolved]
  - Influenza [Recovered/Resolved]
  - Muscle mass [Unknown]
  - Muscle fatigue [Unknown]
  - Injection site pain [Not Recovered/Not Resolved]
